FAERS Safety Report 11027813 (Version 1)
Quarter: 2015Q2

REPORT INFORMATION
  Report Type: Spontaneous
  Country: SK (occurrence: SK)
  Receive Date: 20150414
  Receipt Date: 20150414
  Transmission Date: 20150821
  Serious: Yes (Other)
  Sender: FDA-Public Use
  Company Number: SK-BAXTER-2015BAX019648

PATIENT
  Age: 52 Year
  Sex: Male
  Weight: 102 kg

DRUGS (1)
  1. KIOVIG [Suspect]
     Active Substance: HUMAN IMMUNOGLOBULIN G
     Indication: PRODUCT USED FOR UNKNOWN INDICATION
     Dosage: WITHOUT PUMP, WITHOUT PREMEDICATION
     Route: 042
     Dates: start: 20140925, end: 20140925

REACTIONS (4)
  - Tremor [Recovered/Resolved]
  - Body temperature increased [Recovered/Resolved]
  - Abdominal pain upper [Recovered/Resolved]
  - Hypotension [Recovered/Resolved]

NARRATIVE: CASE EVENT DATE: 20140925
